FAERS Safety Report 9629925 (Version 2)
Quarter: 2013Q4

REPORT INFORMATION
  Report Type: Spontaneous
  Country: JP (occurrence: JP)
  Receive Date: 20131017
  Receipt Date: 20131104
  Transmission Date: 20140711
  Serious: Yes (Other)
  Sender: FDA-Public Use
  Company Number: PHHY2013JP116466

PATIENT
  Sex: Female

DRUGS (6)
  1. NEORAL [Suspect]
     Indication: NEPHROTIC SYNDROME
     Dosage: 50 MG, DAILY
     Route: 048
  2. NEORAL [Suspect]
     Dosage: 75 MG, IN THE MORNING
     Route: 048
     Dates: start: 201307
  3. NEORAL [Suspect]
     Dosage: 50 MG, UNK
     Route: 048
  4. CORTICOSTEROID NOS [Suspect]
     Indication: NEPHROTIC SYNDROME
     Dosage: 10 MG
  5. BREDININ [Concomitant]
  6. DIURETICS [Concomitant]

REACTIONS (4)
  - Eye oedema [Recovered/Resolved]
  - Visual acuity reduced [Unknown]
  - Headache [Recovered/Resolved]
  - Nausea [Unknown]
